FAERS Safety Report 4943841-4 (Version None)
Quarter: 2006Q1

REPORT INFORMATION
  Report Type: 
  Country: None (occurrence: None)
  Receive Date: 20060310
  Receipt Date: 20060224
  Transmission Date: 20060701
  Serious: Yes (Hospitalization)
  Sender: FDA-Public Use
  Company Number: S06-ESP-00996-01

PATIENT
  Age: 26 Year
  Sex: Male

DRUGS (1)
  1. ESCITALOPRAM OXALATE [Suspect]
     Indication: DEPRESSION
     Dosage: 5 MG PO
     Route: 048
     Dates: start: 20050209, end: 20050101

REACTIONS (3)
  - COORDINATION ABNORMAL [None]
  - NYSTAGMUS [None]
  - VERTIGO [None]
